FAERS Safety Report 22633164 (Version 1)
Quarter: 2023Q2

REPORT INFORMATION
  Report Type: Report from Study
  Country: EG (occurrence: EG)
  Receive Date: 20230623
  Receipt Date: 20230623
  Transmission Date: 20230722
  Serious: Yes (Other)
  Sender: FDA-Public Use
  Company Number: EG-002147023-NVSC2023EG140952

PATIENT
  Age: 40 Year
  Sex: Female

DRUGS (11)
  1. HYRIMOZ [Suspect]
     Active Substance: ADALIMUMAB-ADAZ
     Indication: Rheumatoid arthritis
     Dosage: 40 MG, Q2W (EVERY OTHER WEEK)
     Route: 065
     Dates: start: 20230104, end: 20230212
  2. LANTUS [Concomitant]
     Active Substance: INSULIN GLARGINE
     Indication: Diabetes mellitus
     Dosage: 25 IU, QN (AT NIGHT) (START DATE: 1 YEAR AGO)
     Route: 065
  3. SYNJARDY [Concomitant]
     Active Substance: EMPAGLIFLOZIN\METFORMIN HYDROCHLORIDE
     Indication: Diabetes mellitus
     Dosage: 1 DOSAGE FORM, QD (AFTER BREAKFAST) (START DATE: 2 YEARS AGO)
     Route: 065
  4. VILDAGLIPTIN [Concomitant]
     Active Substance: VILDAGLIPTIN
     Indication: Diabetes mellitus
     Dosage: 1 DOSAGE FORM, QD (AFTER LUNCH) (START DATE: 2 YEARS AGO)
     Route: 065
  5. CONCOR 5 PLUS [Concomitant]
     Indication: Hypertension
     Dosage: 1 DOSAGE FORM, QD (ONE TAB IN THE MORNING) (START DATE: 5 YEARS AGO)
     Route: 065
  6. TORSEMIDE [Concomitant]
     Active Substance: TORSEMIDE
     Indication: Hypertension
     Dosage: 1 DOSAGE FORM, QD (ONE TAB IN THE MORNING) (START DATE: 6 YEARS AGO)
     Route: 065
  7. SPECTONE [Concomitant]
     Indication: Hypertension
     Dosage: 1 DOSAGE FORM, QD (ONE TAB IN THE MORNING) (START DATE: 1 YEAR AGO)
     Route: 065
  8. CONTROLOC [Concomitant]
     Active Substance: PANTOPRAZOLE SODIUM
     Indication: Gastric disorder
     Dosage: 1 DOSAGE FORM, QD (ONE TAB BEFORE BREAKFAST) (START DATE - 3 TO 4 YEARS AGO)
     Route: 065
  9. SOLUPRED [Concomitant]
     Indication: Rheumatoid arthritis
     Dosage: 0.5 DOSAGE FORM, QD (HALF TAB ONCE DAILY)
     Route: 065
     Dates: start: 202212, end: 202302
  10. SOLUPRED [Concomitant]
     Dosage: 2 DOSAGE FORM, QD (TWO TABS ONCE DAILY)
     Route: 065
     Dates: start: 202302
  11. CYCLOPHOSPHAMIDE [Concomitant]
     Active Substance: CYCLOPHOSPHAMIDE
     Indication: Product used for unknown indication
     Dosage: UNK
     Route: 065

REACTIONS (4)
  - Liver disorder [Not Recovered/Not Resolved]
  - Noninfective encephalitis [Not Recovered/Not Resolved]
  - Systemic lupus erythematosus [Not Recovered/Not Resolved]
  - Vasculitis [Not Recovered/Not Resolved]

NARRATIVE: CASE EVENT DATE: 20230301
